FAERS Safety Report 8534098-6 (Version None)
Quarter: 2012Q3

REPORT INFORMATION
  Report Type: 
  Country: None (occurrence: None)
  Receive Date: 20120724
  Receipt Date: 20120719
  Transmission Date: 20120928
  Serious: Yes (Other)
  Sender: FDA-Public Use
  Company Number: JP-ROCHE-1091032

PATIENT
  Age: 40 Year
  Sex: Female

DRUGS (1)
  1. AVASTIN [Suspect]
     Indication: LUNG NEOPLASM MALIGNANT
     Route: 041

REACTIONS (1)
  - PNEUMOTHORAX [None]
